FAERS Safety Report 13020991 (Version 1)
Quarter: 2016Q4

REPORT INFORMATION
  Report Type: Spontaneous
  Country: ID (occurrence: ID)
  Receive Date: 20161212
  Receipt Date: 20161212
  Transmission Date: 20170207
  Serious: Yes (Death)
  Sender: FDA-Public Use
  Company Number: ID-ROCHE-1843389

PATIENT
  Age: 57 Year
  Sex: Female

DRUGS (1)
  1. XELODA [Suspect]
     Active Substance: CAPECITABINE
     Indication: BREAST CANCER
     Route: 065
     Dates: end: 20161030

REACTIONS (7)
  - Pyrexia [Unknown]
  - Vomiting [Unknown]
  - Back pain [Unknown]
  - Headache [Unknown]
  - Memory impairment [Unknown]
  - Death [Fatal]
  - Abdominal pain upper [Unknown]
